FAERS Safety Report 4633722-8 (Version None)
Quarter: 2005Q2

REPORT INFORMATION
  Report Type: 
  Country: None (occurrence: None)
  Receive Date: 20050413
  Receipt Date: 20050401
  Transmission Date: 20051028
  Serious: Yes (Life-Threatening)
  Sender: FDA-Public Use
  Company Number: JP-JNJFOC-20050400314

PATIENT
  Sex: Female
  Weight: 66 kg

DRUGS (11)
  1. INFLIXIMAB [Suspect]
     Indication: RHEUMATOID ARTHRITIS
     Route: 042
  2. METHOTREXATE [Concomitant]
  3. METHOTREXATE [Concomitant]
  4. METHOTREXATE [Concomitant]
  5. PREDNISOLONE [Concomitant]
     Indication: RHEUMATOID ARTHRITIS
     Route: 049
  6. RHEUMATREX [Concomitant]
     Indication: RHEUMATOID ARTHRITIS
     Route: 049
  7. RIMATIL [Concomitant]
     Indication: RHEUMATOID ARTHRITIS
     Route: 049
  8. MOBIC [Concomitant]
     Indication: RHEUMATOID ARTHRITIS
     Route: 049
  9. FOLIAMIN [Concomitant]
     Route: 049
  10. MARSLEN S [Concomitant]
     Route: 049
  11. BONALON [Concomitant]
     Route: 049

REACTIONS (1)
  - MYELITIS [None]
